FAERS Safety Report 4282376-1 (Version None)
Quarter: 2004Q1

REPORT INFORMATION
  Report Type: 
  Country: None (occurrence: None)
  Receive Date: 20040114
  Receipt Date: 20030521
  Transmission Date: 20041129
  Serious: Yes (Other)
  Sender: FDA-Public Use
  Company Number: PHEH2003US04252

PATIENT
  Age: 57 Year
  Sex: Male

DRUGS (4)
  1. SANDOSTATIN LAR [Suspect]
     Indication: THYROID ADENOMA
     Dosage: 30 MG, QMO, INTRAMUSCULAR
     Route: 030
     Dates: start: 20030101
  2. LOPERAMIDE HCL [Concomitant]
  3. CALCIUM [Concomitant]
  4. TESTOSTERONE [Concomitant]

REACTIONS (1)
  - RENAL FAILURE [None]
